FAERS Safety Report 19593599 (Version 1)
Quarter: 2021Q3

REPORT INFORMATION
  Report Type: Report from Study
  Country: CA (occurrence: CA)
  Receive Date: 20210722
  Receipt Date: 20210722
  Transmission Date: 20211014
  Serious: Yes (Other)
  Sender: FDA-Public Use
  Company Number: CA-NALPROPION PHARMACEUTICALS INC.-2021-013590

PATIENT

DRUGS (7)
  1. SYNTHROID [Concomitant]
     Active Substance: LEVOTHYROXINE SODIUM
     Indication: HYPOTHYROIDISM
     Dosage: DAILY (0.5 MG, 1 IN 1 D)
     Route: 048
  2. CONTRAVE [Suspect]
     Active Substance: BUPROPION HYDROCHLORIDE\NALTREXONE HYDROCHLORIDE
     Dosage: 8MG/ 90MG, WEEK 4, 2 TAB IN MORNING AND 2 TAB IN EVENING
     Route: 048
     Dates: start: 20210705
  3. CONTRAVE [Suspect]
     Active Substance: BUPROPION HYDROCHLORIDE\NALTREXONE HYDROCHLORIDE
     Indication: WEIGHT CONTROL
     Dosage: 8MG/ 90MG, WEEK 1 (1 DOSAGE FORMS, 1 IN 1 D)
     Route: 048
     Dates: start: 20210614, end: 20210620
  4. CONTRAVE [Suspect]
     Active Substance: BUPROPION HYDROCHLORIDE\NALTREXONE HYDROCHLORIDE
     Dosage: 8MG/ 90MG, WEEK 2 (1 DOSAGE FORMS, 1 IN 12 HR)
     Route: 048
     Dates: start: 20210621, end: 20210627
  5. CONTRAVE [Suspect]
     Active Substance: BUPROPION HYDROCHLORIDE\NALTREXONE HYDROCHLORIDE
     Dosage: 8MG/ 90MG, WEEK 3, 2 TAB IN MORNING AND 1 TAB IN EVENING
     Route: 048
     Dates: start: 20210628, end: 20210704
  6. BLEXTEN [Concomitant]
     Active Substance: BILASTINE
     Indication: HYPERSENSITIVITY
     Dosage: 1 DOSAGE FORMS, 1 IN 1 D
     Route: 048
  7. REACTINE                           /00884302/ [Concomitant]
     Active Substance: CETIRIZINE HYDROCHLORIDE
     Indication: HYPERSENSITIVITY
     Dosage: 20 MG, 1 IN 1 D
     Route: 048

REACTIONS (6)
  - Nausea [Recovered/Resolved]
  - Hypoxia [Unknown]
  - Anxiety [Unknown]
  - Abdominal pain upper [Recovered/Resolved]
  - Decreased appetite [Unknown]
  - Headache [Unknown]

NARRATIVE: CASE EVENT DATE: 2021
